FAERS Safety Report 5723877-6 (Version None)
Quarter: 2008Q2

REPORT INFORMATION
  Report Type: 
  Country: None (occurrence: None)
  Receive Date: 20080430
  Receipt Date: 20080428
  Transmission Date: 20081010
  Serious: Yes (Hospitalization)
  Sender: FDA-Public Use
  Company Number: CN-BRISTOL-MYERS SQUIBB COMPANY-14166573

PATIENT
  Age: 59 Year
  Sex: Female

DRUGS (3)
  1. ENTECAVIR [Suspect]
     Indication: HEPATITIS B
     Dates: start: 20080221
  2. URSODIOL [Concomitant]
     Dates: start: 20071219
  3. CHINESE HERBS [Concomitant]
     Dosage: LO LUO HUA XIAN WAN;  WU ZHI JIAO NANG 20 FEB 2008
     Dates: start: 20071017

REACTIONS (2)
  - ASCITES [None]
  - BLOOD BILIRUBIN INCREASED [None]
